FAERS Safety Report 12446568 (Version 1)
Quarter: 2016Q2

REPORT INFORMATION
  Report Type: Spontaneous
  Country: US (occurrence: None)
  Receive Date: 20160607
  Receipt Date: 20160607
  Transmission Date: 20160815
  Serious: Yes (Life-Threatening, Hospitalization)
  Sender: FDA-Public Use
  Company Number: None

PATIENT
  Age: 32 Year
  Sex: Female
  Weight: 90.72 kg

DRUGS (10)
  1. SEROQUEL [Concomitant]
     Active Substance: QUETIAPINE FUMARATE
  2. GABAPENTIN. [Suspect]
     Active Substance: GABAPENTIN
     Indication: PRODUCT USED FOR UNKNOWN INDICATION
     Dosage: AS NEEDED BY HAND.
  3. THYROID MEDICINE [Concomitant]
     Active Substance: UNSPECIFIED INGREDIENT
  4. BIRTH CONTROL [Concomitant]
     Active Substance: UNSPECIFIED INGREDIENT
  5. UNIDENTIFIED PILLS [Concomitant]
  6. OXYCODONE [Concomitant]
     Active Substance: OXYCODONE
  7. LITHIUM. [Concomitant]
     Active Substance: LITHIUM
  8. SAPHRIS [Concomitant]
     Active Substance: ASENAPINE MALEATE
  9. MULTIVITAMIN [Concomitant]
     Active Substance: VITAMINS
  10. KLONOPIN [Concomitant]
     Active Substance: CLONAZEPAM

REACTIONS (8)
  - Amnesia [None]
  - Mental disorder [None]
  - Weight increased [None]
  - Speech disorder [None]
  - Drug dependence [None]
  - Restlessness [None]
  - Suicidal behaviour [None]
  - Suicidal ideation [None]

NARRATIVE: CASE EVENT DATE: 20160501
